FAERS Safety Report 23650483 (Version 3)
Quarter: 2024Q2

REPORT INFORMATION
  Report Type: Report from Study
  Country: US (occurrence: US)
  Receive Date: 20240320
  Receipt Date: 20240410
  Transmission Date: 20240716
  Serious: Yes (Hospitalization, Other)
  Sender: FDA-Public Use
  Company Number: US-ABBVIE-5683466

PATIENT
  Sex: Male
  Weight: 75 kg

DRUGS (5)
  1. HUMIRA [Suspect]
     Active Substance: ADALIMUMAB
     Indication: Psoriatic arthropathy
     Route: 058
     Dates: start: 2022
  2. HUMIRA [Suspect]
     Active Substance: ADALIMUMAB
     Route: 058
     Dates: start: 20210615
  3. ZYRTEC [Concomitant]
     Active Substance: CETIRIZINE HYDROCHLORIDE
     Indication: Nasal congestion
     Dosage: FORM STRENGTH: 10 MILLIGRAM?ZYRTEC-OTC
     Route: 048
     Dates: start: 2022
  4. MAGNESIUM OXIDE [Concomitant]
     Active Substance: MAGNESIUM OXIDE
     Indication: Constipation
     Dosage: FREQUENCY TEXT: 2 BID??MGO-OTC
     Route: 048
     Dates: start: 2020
  5. PSYLLIUM [Concomitant]
     Active Substance: PLANTAGO SEED
     Indication: Constipation
     Dosage: FREQUENCY TEXT: 2 BID?PSYLLIUM-OTC
     Route: 048
     Dates: start: 2020

REACTIONS (15)
  - Bladder pain [Recovered/Resolved]
  - Psoriatic arthropathy [Recovered/Resolved]
  - Adenocarcinoma pancreas [Recovered/Resolved]
  - Fatigue [Recovered/Resolved]
  - Incision site discharge [Not Recovered/Not Resolved]
  - Urinary tract infection [Recovered/Resolved]
  - Diverticulitis [Recovered/Resolved]
  - Urinary tract infection [Recovered/Resolved]
  - Malignant splenic neoplasm [Recovered/Resolved]
  - Swelling [Recovering/Resolving]
  - Lymphadenopathy [Unknown]
  - Musculoskeletal stiffness [Recovering/Resolving]
  - Tenderness [Recovering/Resolving]
  - Urinary retention [Recovered/Resolved]
  - Cyst [Unknown]

NARRATIVE: CASE EVENT DATE: 20230101
